FAERS Safety Report 9919193 (Version 4)
Quarter: 2014Q1

REPORT INFORMATION
  Report Type: Spontaneous
  Country: JP (occurrence: JP)
  Receive Date: 20140224
  Receipt Date: 20140325
  Transmission Date: 20141002
  Serious: Yes (Hospitalization, Other)
  Sender: FDA-Public Use
  Company Number: JP-PFIZER INC-2014046259

PATIENT
  Age: 57 Year
  Sex: Female
  Weight: 51 kg

DRUGS (15)
  1. LYRICA [Suspect]
     Indication: NEURALGIA
     Dosage: 75 MG, 2X/DAY
     Route: 048
     Dates: start: 20130930, end: 20140116
  2. LYRICA [Suspect]
     Dosage: 75 MG, 3X/DAY
     Route: 048
     Dates: start: 20140117, end: 20140129
  3. LYRICA [Suspect]
     Dosage: 75 MG, 2X/DAY
     Route: 048
     Dates: start: 20140130, end: 20140216
  4. LYRICA [Suspect]
     Dosage: 75 MG, 1X/DAY
     Route: 048
     Dates: start: 20140217, end: 20140220
  5. GABAPEN [Suspect]
     Indication: CONVULSION
     Dosage: 200 TO 1000 MG DAILY
     Route: 048
     Dates: start: 20131220, end: 20140108
  6. GABAPEN [Suspect]
     Dosage: 400 MG, 3X/DAY
     Route: 048
     Dates: start: 20140109, end: 20140212
  7. GABAPEN [Suspect]
     Dosage: 200 MG, 3X/DAY
     Route: 048
     Dates: start: 20140213, end: 20140216
  8. GABAPEN [Suspect]
     Dosage: 200 MG, 1X/DAY MORNING
     Route: 048
     Dates: start: 20140217
  9. PREDNISOLONE [Concomitant]
     Dosage: UNK
     Route: 048
  10. RISEDRONATE SODIUM [Concomitant]
     Indication: OSTEOPOROSIS
     Dosage: UNK
     Route: 048
  11. TAKEPRON OD [Concomitant]
     Dosage: UNK
     Route: 048
  12. EBRANTIL [Concomitant]
     Dosage: UNK
     Route: 048
     Dates: start: 20131105
  13. RIVOTRIL [Concomitant]
     Dosage: UNK
     Route: 048
  14. E KEPPRA [Concomitant]
     Dosage: UNK
     Route: 048
  15. BESACOLIN [Concomitant]
     Route: 048

REACTIONS (9)
  - Diplopia [Unknown]
  - Disorientation [Unknown]
  - Somnolence [Not Recovered/Not Resolved]
  - Chromaturia [Unknown]
  - C-reactive protein decreased [Unknown]
  - Dizziness [Unknown]
  - Rhabdomyolysis [Recovering/Resolving]
  - Neuromyelitis optica [Unknown]
  - Blood creatine phosphokinase increased [Recovering/Resolving]
